FAERS Safety Report 12978817 (Version 1)
Quarter: 2016Q4

REPORT INFORMATION
  Report Type: Spontaneous
  Country: JP (occurrence: JP)
  Receive Date: 20161128
  Receipt Date: 20161128
  Transmission Date: 20170207
  Serious: Yes (Hospitalization, Other)
  Sender: FDA-Public Use
  Company Number: JP-HQ SPECIALTY-JP-2016INT000956

PATIENT
  Age: 69 Year
  Sex: Male

DRUGS (2)
  1. IRINOTECAN [Suspect]
     Active Substance: IRINOTECAN
     Indication: NEUROENDOCRINE CARCINOMA
     Dosage: 90 MG/BODY, ON DAY 1, 8 AND 15 FOR 4 TIMES IN A WEEK
  2. CISPLATIN. [Suspect]
     Active Substance: CISPLATIN
     Indication: NEUROENDOCRINE CARCINOMA
     Dosage: 90 MG/BODY, ON DAY 1 FOR 4 TIMES IN A WEEK
     Route: 042

REACTIONS (11)
  - Blood creatine phosphokinase increased [Recovered/Resolved]
  - Paralysis [Recovered/Resolved]
  - Blood lactate dehydrogenase increased [Recovered/Resolved]
  - Pain in extremity [Recovered/Resolved]
  - Pallor [Recovered/Resolved]
  - Decreased appetite [Unknown]
  - Peripheral artery occlusion [Recovered/Resolved]
  - Asthenia [Recovered/Resolved]
  - Hypoaesthesia [Recovered/Resolved]
  - Thrombocytopenia [Unknown]
  - Febrile neutropenia [Recovering/Resolving]
